FAERS Safety Report 9530229 (Version 2)
Quarter: 2013Q4

REPORT INFORMATION
  Report Type: Spontaneous
  Country: JP (occurrence: JP)
  Receive Date: 20130917
  Receipt Date: 20131001
  Transmission Date: 20140711
  Serious: No
  Sender: FDA-Public Use
  Company Number: JP-B.I. PHARMACEUTICALS,INC./RIDGEFIELD-2013-BI-28703NB

PATIENT
  Age: 55 Year
  Sex: Male

DRUGS (3)
  1. TRAZENTA [Suspect]
     Indication: DIABETES MELLITUS
     Dosage: 5 MG
     Route: 048
     Dates: start: 20130804, end: 20130815
  2. TRAZENTA [Suspect]
     Dosage: 5 MG
     Route: 048
     Dates: start: 201308
  3. CRESTOR [Concomitant]
     Indication: DYSLIPIDAEMIA
     Dosage: 2.5 MG
     Route: 048

REACTIONS (1)
  - Urticaria [Recovered/Resolved]
